FAERS Safety Report 14558044 (Version 1)
Quarter: 2018Q1

REPORT INFORMATION
  Report Type: Spontaneous
  Country: DE (occurrence: DE)
  Receive Date: 20180221
  Receipt Date: 20180221
  Transmission Date: 20180509
  Serious: Yes (Other)
  Sender: FDA-Public Use
  Company Number: DE-SA-2018SA038580

PATIENT
  Age: 5 Year
  Sex: Female
  Weight: 41 kg

DRUGS (7)
  1. ONCOFOLIC [Concomitant]
     Active Substance: FOLATE SODIUM
     Indication: ADENOCARCINOMA OF COLON
     Route: 042
     Dates: start: 20160509, end: 20160509
  2. 5-FU ^MEDAC^ [Concomitant]
     Active Substance: FLUOROURACIL
     Indication: ADENOCARCINOMA OF COLON
     Route: 065
     Dates: start: 20161010, end: 20161010
  3. GRANISETRON [Concomitant]
     Active Substance: GRANISETRON
     Indication: PREMEDICATION
     Route: 065
  4. 5-FU ^MEDAC^ [Concomitant]
     Active Substance: FLUOROURACIL
     Indication: ADENOCARCINOMA OF COLON
     Route: 065
     Dates: start: 20160509, end: 20160509
  5. OXALIPLATIN. [Suspect]
     Active Substance: OXALIPLATIN
     Indication: ADENOCARCINOMA OF COLON
     Route: 042
     Dates: start: 20160425, end: 20160425
  6. OXALIPLATIN. [Suspect]
     Active Substance: OXALIPLATIN
     Indication: ADENOCARCINOMA OF COLON
     Route: 042
     Dates: start: 20161010, end: 20161010
  7. ONCOFOLIC [Concomitant]
     Active Substance: FOLATE SODIUM
     Indication: ADENOCARCINOMA OF COLON
     Route: 042
     Dates: start: 20161010, end: 20161010

REACTIONS (1)
  - Leukocytosis [Recovered/Resolved]

NARRATIVE: CASE EVENT DATE: 20160509
